FAERS Safety Report 20711409 (Version 2)
Quarter: 2022Q2

REPORT INFORMATION
  Report Type: Spontaneous
  Country: CH (occurrence: None)
  Receive Date: 20220414
  Receipt Date: 20220415
  Transmission Date: 20220721
  Serious: Yes (Hospitalization, Other)
  Sender: FDA-Public Use
  Company Number: 2022A125984

PATIENT
  Age: 28 Year
  Sex: Female

DRUGS (3)
  1. SEROQUEL [Suspect]
     Active Substance: QUETIAPINE FUMARATE
     Indication: Psychotic disorder
     Dosage: 300.0MG UNKNOWN
     Route: 048
  2. SEROQUEL [Suspect]
     Active Substance: QUETIAPINE FUMARATE
     Indication: Psychotic disorder
     Dosage: 300.0MG UNKNOWN
     Route: 048
  3. RISPERDAL [Suspect]
     Active Substance: RISPERIDONE
     Route: 065

REACTIONS (9)
  - Poisoning [Unknown]
  - Substance-induced psychotic disorder [Unknown]
  - Migraine [Unknown]
  - Pain in extremity [Unknown]
  - Disturbance in attention [Unknown]
  - Sensory disturbance [Unknown]
  - Cognitive disorder [Unknown]
  - Pain [Unknown]
  - Product prescribing issue [Unknown]
